FAERS Safety Report 17486325 (Version 3)
Quarter: 2020Q1

REPORT INFORMATION
  Report Type: Spontaneous
  Country: GB (occurrence: GB)
  Receive Date: 20200303
  Receipt Date: 20200327
  Transmission Date: 20200409
  Serious: Yes (Life-Threatening, Other)
  Sender: FDA-Public Use
  Company Number: GB-TORRENT-00022996

PATIENT
  Age: 90 Year
  Sex: Female

DRUGS (4)
  1. ATORVASTATIN [Interacting]
     Active Substance: ATORVASTATIN
     Indication: TRANSIENT ISCHAEMIC ATTACK
     Dosage: 40 MILLIGRAM, QD, EVERY NIGHT (STARTED IN TIA CLINIC FOLLOW-UP APPOINTMENT) ON DAY 92
     Route: 065
  2. ACETYLSALICYLIC ACID [Concomitant]
     Active Substance: ASPIRIN
     Indication: PRODUCT USED FOR UNKNOWN INDICATION
     Dosage: 300 MILLIGRAM, QD, BETWEEN DAY 1 AND DAY 20.
     Route: 065
  3. CLOPIDOGREL [Suspect]
     Active Substance: CLOPIDOGREL BISULFATE
     Indication: TRANSIENT ISCHAEMIC ATTACK
     Dosage: 75 MILLIGRAM, QD, STARTED FOLLOWING TIA CLINIC APPOINTMENT ON DAY 20
  4. NIFEDIPINE. [Interacting]
     Active Substance: NIFEDIPINE
     Indication: HYPERTENSION
     Dosage: 10 MILLIGRAM, QD, MODIFIED RELEASE, LONG-STANDING;
     Route: 065

REACTIONS (5)
  - Potentiating drug interaction [Recovered/Resolved]
  - Epistaxis [Unknown]
  - Diverticulum intestinal [Unknown]
  - Hypergammaglobulinaemia [Unknown]
  - Drug-induced liver injury [Recovered/Resolved]
